FAERS Safety Report 19904276 (Version 15)
Quarter: 2025Q4

REPORT INFORMATION
  Report Type: Report from Study
  Country: US (occurrence: US)
  Receive Date: 20211001
  Receipt Date: 20251221
  Transmission Date: 20260118
  Serious: No
  Sender: PFIZER
  Company Number: US-PFIZER INC-202100993403

PATIENT
  Age: 70 Year
  Sex: Female

DRUGS (1)
  1. IBRANCE [Suspect]
     Active Substance: PALBOCICLIB
     Indication: Breast cancer stage IV
     Dosage: 125 MG, CYCLIC (DAILY ON DAYS 1-21 OF EACH 28-DAY CYCLE, WHOLE WITH WATER/WITH OR WITHOUT FOOD)
     Route: 048
     Dates: start: 2020

REACTIONS (3)
  - Insomnia [Recovering/Resolving]
  - Influenza like illness [Unknown]
  - Memory impairment [Unknown]
